FAERS Safety Report 8259388-6 (Version None)
Quarter: 2012Q1

REPORT INFORMATION
  Report Type: 
  Country: None (occurrence: None)
  Receive Date: 20120327
  Receipt Date: 20081006
  Transmission Date: 20120608
  Serious: Yes (Other)
  Sender: FDA-Public Use
  Company Number: PHEH2008US08889

PATIENT
  Age: 17 Year
  Sex: Female

DRUGS (1)
  1. GLEEVEC [Suspect]
     Indication: CHRONIC MYELOID LEUKAEMIA
     Dosage: 400 MG, QD, ORAL
     Route: 048
     Dates: start: 20060801

REACTIONS (5)
  - BACK PAIN [None]
  - HIP SURGERY [None]
  - OSTEONECROSIS [None]
  - ARTHRALGIA [None]
  - JOINT RANGE OF MOTION DECREASED [None]
